FAERS Safety Report 5205157-0 (Version None)
Quarter: 2006Q4

REPORT INFORMATION
  Report Type: 
  Country: None (occurrence: None)
  Receive Date: 20061026
  Receipt Date: 20060807
  Transmission Date: 20070319
  Serious: Yes (Other)
  Sender: FDA-Public Use
  Company Number: 2006097528

PATIENT
  Sex: Female
  Weight: 77.1115 kg

DRUGS (2)
  1. LYRICA [Suspect]
     Indication: NEURALGIA
     Dosage: 150 MG (75 MG 2 IN 1 D)
     Dates: start: 20060803
  2. GABAPENTIN [Suspect]
     Indication: NEURALGIA
     Dates: start: 20060301

REACTIONS (7)
  - DRUG INEFFECTIVE [None]
  - EYE HAEMORRHAGE [None]
  - EYE PAIN [None]
  - MUSCLE SPASMS [None]
  - SEDATION [None]
  - SLEEP DISORDER [None]
  - SOMNOLENCE [None]
